FAERS Safety Report 25022217 (Version 1)
Quarter: 2025Q1

REPORT INFORMATION
  Report Type: Spontaneous
  Country: NO (occurrence: NO)
  Receive Date: 20250228
  Receipt Date: 20250228
  Transmission Date: 20250408
  Serious: Yes (Other)
  Sender: NOVO NORDISK
  Company Number: None

PATIENT
  Age: 45 Year
  Sex: Male

DRUGS (2)
  1. WEGOVY [Suspect]
     Active Substance: SEMAGLUTIDE
     Dosage: UNK (DOSE REDUCED)
  2. WEGOVY [Suspect]
     Active Substance: SEMAGLUTIDE
     Indication: Overweight
     Dosage: 1 MG, QW
     Dates: start: 20240101

REACTIONS (2)
  - Erectile dysfunction [Not Recovered/Not Resolved]
  - Libido decreased [Unknown]

NARRATIVE: CASE EVENT DATE: 20250101
